FAERS Safety Report 5977995-8 (Version None)
Quarter: 2008Q4

REPORT INFORMATION
  Report Type: 
  Country: None (occurrence: None)
  Receive Date: 20081203
  Receipt Date: 20081124
  Transmission Date: 20090506
  Serious: Yes (Other)
  Sender: FDA-Public Use
  Company Number: CA-WYE-G02338008

PATIENT
  Sex: Male
  Weight: 118 kg

DRUGS (36)
  1. SIROLIMUS [Suspect]
     Indication: PROPHYLAXIS AGAINST TRANSPLANT REJECTION
     Route: 048
     Dates: start: 20080626, end: 20080626
  2. SIROLIMUS [Suspect]
     Route: 048
     Dates: start: 20080627, end: 20080703
  3. SIROLIMUS [Suspect]
     Route: 048
     Dates: start: 20080704, end: 20080708
  4. SIROLIMUS [Suspect]
     Route: 048
     Dates: start: 20080709
  5. MYCOPHENOLATE MOFETIL [Suspect]
     Route: 048
     Dates: start: 20080313
  6. METHYLPREDNISOLONE 16MG TAB [Suspect]
     Route: 048
     Dates: start: 20080313, end: 20080313
  7. METHYLPREDNISOLONE 16MG TAB [Suspect]
     Route: 048
     Dates: start: 20081008, end: 20081008
  8. METHYLPREDNISOLONE 16MG TAB [Suspect]
     Route: 048
     Dates: start: 20081009, end: 20081010
  9. PREDNISONE TAB [Suspect]
     Route: 048
     Dates: start: 20080517, end: 20081002
  10. PREDNISONE TAB [Suspect]
     Route: 048
     Dates: start: 20081003, end: 20081008
  11. PREDNISONE TAB [Suspect]
     Route: 048
     Dates: start: 20081011, end: 20081013
  12. PREDNISONE TAB [Suspect]
     Route: 048
     Dates: start: 20081014, end: 20081016
  13. PREDNISONE TAB [Suspect]
     Route: 048
     Dates: start: 20081017, end: 20081019
  14. PREDNISONE TAB [Suspect]
     Route: 048
     Dates: start: 20081020, end: 20081022
  15. PREDNISONE TAB [Suspect]
     Route: 048
     Dates: start: 20081023, end: 20081025
  16. PREDNISONE TAB [Suspect]
     Route: 048
     Dates: start: 20081026, end: 20081028
  17. PREDNISONE TAB [Suspect]
     Route: 048
     Dates: start: 20081029, end: 20081031
  18. PREDNISONE TAB [Suspect]
     Route: 048
     Dates: start: 20081101
  19. IRBESARTAN [Concomitant]
     Route: 048
     Dates: start: 20081002
  20. DILTIAZEM [Concomitant]
     Route: 048
     Dates: start: 20080116, end: 20080324
  21. DILTIAZEM [Concomitant]
     Route: 048
     Dates: start: 20080325
  22. CLONIDINE [Concomitant]
     Route: 048
     Dates: start: 20080316, end: 20081002
  23. METOPROLOL [Concomitant]
     Route: 048
     Dates: start: 20080316, end: 20080612
  24. METOPROLOL [Concomitant]
     Route: 048
     Dates: start: 20080613
  25. LIPITOR [Concomitant]
     Route: 048
     Dates: start: 20040902, end: 20080312
  26. LIPITOR [Concomitant]
     Route: 048
     Dates: start: 20080501, end: 20080728
  27. LIPITOR [Concomitant]
     Route: 048
     Dates: start: 20080729, end: 20080919
  28. LIPITOR [Concomitant]
     Route: 048
     Dates: start: 20080920
  29. TACROLIMUS [Suspect]
     Route: 048
     Dates: start: 20080316, end: 20080318
  30. TACROLIMUS [Suspect]
     Route: 048
     Dates: start: 20080319, end: 20080319
  31. TACROLIMUS [Suspect]
     Route: 048
     Dates: start: 20080320, end: 20080401
  32. TACROLIMUS [Suspect]
     Route: 048
     Dates: start: 20080402, end: 20080421
  33. TACROLIMUS [Suspect]
     Route: 048
     Dates: start: 20080422, end: 20080429
  34. TACROLIMUS [Suspect]
     Route: 048
     Dates: start: 20080430, end: 20080625
  35. DACLIZUMAB [Suspect]
     Indication: PROPHYLAXIS AGAINST TRANSPLANT REJECTION
     Route: 048
     Dates: start: 20080313, end: 20080313
  36. DACLIZUMAB [Suspect]
     Route: 048
     Dates: start: 20080326, end: 20080326

REACTIONS (1)
  - KIDNEY TRANSPLANT REJECTION [None]
